FAERS Safety Report 8611111-9 (Version None)
Quarter: 2012Q3

REPORT INFORMATION
  Report Type: 
  Country: None (occurrence: None)
  Receive Date: 20120808
  Receipt Date: 20120724
  Transmission Date: 20120928
  Serious: Yes (Hospitalization)
  Sender: FDA-Public Use
  Company Number: 2012SGN00332

PATIENT
  Age: 51 Year
  Sex: Female
  Weight: 93.9 kg

DRUGS (13)
  1. APREPITANT [Concomitant]
  2. ADRIAMYCIN PFS [Suspect]
     Indication: HODGKIN'S DISEASE
     Dosage: 375 MG/M2, UNK
     Dates: start: 20120612, end: 20120612
  3. PROCHLORPERAZINE (PROCHLORPERAZINE MALEATE) [Concomitant]
  4. OMEPRAZOLE [Concomitant]
  5. ZOFRAN [Concomitant]
  6. DACARBAZINE [Suspect]
     Indication: HODGKIN'S DISEASE
     Dosage: 25 MG/M2, UNK
     Dates: start: 20120612, end: 20120612
  7. NAPROXEN SODIUM [Concomitant]
  8. CYANOCOBALAMIN [Concomitant]
  9. VINBLASTINE SULFATE [Suspect]
     Indication: HODGKIN'S DISEASE
     Dosage: 6 MG/M2, UNK
     Dates: start: 20120612, end: 20120612
  10. LORAZEPAM [Concomitant]
  11. LISINOPRIL (LISINOPRIL DIHYDRATE) [Concomitant]
  12. BRENTUXIMAB VEDOTIN (BRENTUXIMAB VEDOTIN) INJECTION [Suspect]
     Indication: HODGKIN'S DISEASE
     Dosage: 1.2 MG/KG, UNK
     Dates: start: 20120515, end: 20120612
  13. IBUPROFEN [Concomitant]

REACTIONS (7)
  - WHITE BLOOD CELL COUNT DECREASED [None]
  - ILEUS [None]
  - TRANSAMINASES INCREASED [None]
  - DEHYDRATION [None]
  - FEBRILE NEUTROPENIA [None]
  - OESOPHAGITIS [None]
  - BACTERIAL TEST POSITIVE [None]
